FAERS Safety Report 5346910-2 (Version None)
Quarter: 2007Q2

REPORT INFORMATION
  Report Type: 
  Country: None (occurrence: None)
  Receive Date: 20070426
  Receipt Date: 20061120
  Transmission Date: 20071010
  Serious: Yes (Hospitalization)
  Sender: FDA-Public Use
  Company Number: 2006SP006867

PATIENT
  Sex: Female

DRUGS (2)
  1. CELESTONE SOLUSPAN [Suspect]
     Indication: FOETAL DISORDER
     Dosage: IV
     Route: 042
  2. CELESTONE SOLUSPAN [Suspect]
     Indication: LUNG DISORDER
     Dosage: IV
     Route: 042

REACTIONS (3)
  - DRUG EXPOSURE DURING PREGNANCY [None]
  - INCORRECT ROUTE OF DRUG ADMINISTRATION [None]
  - NO ADVERSE EFFECT [None]
